FAERS Safety Report 8952393 (Version 1)
Quarter: 2012Q4

REPORT INFORMATION
  Report Type: 
  Country: US (occurrence: US)
  Receive Date: 20121205
  Receipt Date: 20121205
  Transmission Date: 20130627
  Serious: No
  Sender: FDA-Public Use
  Company Number: US-BIOGENIDEC-2012BI056480

PATIENT
  Sex: Male

DRUGS (1)
  1. TYSABRI [Suspect]
     Indication: MULTIPLE SCLEROSIS
     Route: 042
     Dates: start: 20120906, end: 201210

REACTIONS (5)
  - Disturbance in attention [Not Recovered/Not Resolved]
  - Atrophy [Not Recovered/Not Resolved]
  - Memory impairment [Unknown]
  - Muscle disorder [Unknown]
  - Asthenia [Not Recovered/Not Resolved]
